FAERS Safety Report 13933728 (Version 4)
Quarter: 2019Q1

REPORT INFORMATION
  Report Type: Spontaneous
  Country: US (occurrence: US)
  Receive Date: 20170904
  Receipt Date: 20190107
  Transmission Date: 20190417
  Serious: Yes (Hospitalization, Other)
  Sender: FDA-Public Use
  Company Number: US-DSJP-DSU-2017-134074

PATIENT

DRUGS (2)
  1. BENICAR HCT [Suspect]
     Active Substance: HYDROCHLOROTHIAZIDE\OLMESARTAN MEDOXOMIL
     Indication: HYPERTENSION
     Dosage: 40/12.5 MG , QD
     Route: 048
     Dates: start: 20140211
  2. BENICAR [Suspect]
     Active Substance: OLMESARTAN MEDOXOMIL
     Indication: HYPERTENSION
     Dosage: 40 MG, QD
     Route: 048
     Dates: start: 20140211, end: 20161020

REACTIONS (7)
  - Acute kidney injury [Recovering/Resolving]
  - Hernia [Unknown]
  - Sprue-like enteropathy [Recovering/Resolving]
  - Multiple organ dysfunction syndrome [Unknown]
  - Haemorrhoids [Unknown]
  - Hypotension [Recovering/Resolving]
  - Gastroenteritis [Unknown]

NARRATIVE: CASE EVENT DATE: 201608
